FAERS Safety Report 8967105 (Version 1)
Quarter: 2012Q4

REPORT INFORMATION
  Report Type: 
  Country: GB (occurrence: GB)
  Receive Date: 20121214
  Receipt Date: 20121214
  Transmission Date: 20130627
  Serious: Yes (Disabling)
  Sender: FDA-Public Use
  Company Number: GB-PFIZER INC-2012286332

PATIENT
  Age: 40 Year
  Sex: Female

DRUGS (2)
  1. CHAMPIX [Suspect]
     Indication: SMOKING CESSATION THERAPY
     Dosage: 1 mg, 2x/day
     Route: 048
     Dates: start: 20120921, end: 20121019
  2. OMEPRAZOLE [Concomitant]
     Dosage: 20 mg, 2x/day
     Route: 048
     Dates: start: 20110913

REACTIONS (5)
  - Depressive symptom [Unknown]
  - Tearfulness [Recovered/Resolved]
  - Depressed mood [Recovered/Resolved]
  - Panic reaction [Recovered/Resolved]
  - Activities of daily living impaired [Recovered/Resolved]
